FAERS Safety Report 14580294 (Version 2)
Quarter: 2018Q1

REPORT INFORMATION
  Report Type: Spontaneous
  Country: RO (occurrence: RO)
  Receive Date: 20180228
  Receipt Date: 20180313
  Transmission Date: 20180509
  Serious: Yes (Death)
  Sender: FDA-Public Use
  Company Number: RO-ASTRAZENECA-2018SE23858

PATIENT
  Age: 21574 Day
  Sex: Male

DRUGS (6)
  1. BRILIQUE [Suspect]
     Active Substance: TICAGRELOR
     Indication: ACUTE MYOCARDIAL INFARCTION
     Route: 048
     Dates: start: 20171101, end: 20180129
  2. RAMIPRIL. [Concomitant]
     Active Substance: RAMIPRIL
  3. ASA [Concomitant]
     Active Substance: ASPIRIN
  4. BRILIQUE [Suspect]
     Active Substance: TICAGRELOR
     Indication: ACUTE MYOCARDIAL INFARCTION
     Route: 048
     Dates: start: 20171124
  5. PREDUCTAL [Concomitant]
     Active Substance: TRIMETAZIDINE DIHYDROCHLORIDE
  6. DETRALEX [Concomitant]
     Active Substance: DIOSMIN\HESPERIDIN

REACTIONS (2)
  - Road traffic accident [Fatal]
  - Haemorrhage intracranial [Fatal]

NARRATIVE: CASE EVENT DATE: 20180129
